FAERS Safety Report 10975161 (Version 1)
Quarter: 2015Q2

REPORT INFORMATION
  Report Type: Spontaneous
  Country: US (occurrence: US)
  Receive Date: 20150401
  Receipt Date: 20150401
  Transmission Date: 20150821
  Serious: No
  Sender: FDA-Public Use
  Company Number: US-PFIZER INC-2015108810

PATIENT
  Age: 55 Year
  Sex: Male
  Weight: 88 kg

DRUGS (3)
  1. LANTUS [Concomitant]
     Active Substance: INSULIN GLARGINE
     Dosage: 45 IU, DAILY
  2. ADVIL [Suspect]
     Active Substance: IBUPROFEN
     Indication: ARTHRALGIA
     Dosage: 400 MG, UNK
  3. BYDUREON [Concomitant]
     Active Substance: EXENATIDE
     Dosage: 2 MG, WEEKLY

REACTIONS (3)
  - Musculoskeletal discomfort [Unknown]
  - Product quality issue [Unknown]
  - Poor quality drug administered [Unknown]
